FAERS Safety Report 9713479 (Version 1)
Quarter: 2013Q4

REPORT INFORMATION
  Report Type: Spontaneous
  Country: US (occurrence: US)
  Receive Date: 20131126
  Receipt Date: 20131126
  Transmission Date: 20140711
  Serious: No
  Sender: FDA-Public Use
  Company Number: US-B.I. PHARMACEUTICALS,INC./RIDGEFIELD-2013-BI-37555BP

PATIENT
  Age: 8 Decade
  Sex: Male

DRUGS (2)
  1. TRADJENTA [Suspect]
     Indication: TYPE 2 DIABETES MELLITUS
     Dosage: 5 MG
     Dates: start: 201311, end: 201311
  2. BASAL INSULIN [Concomitant]

REACTIONS (1)
  - Dizziness [Recovered/Resolved]
